FAERS Safety Report 16928183 (Version 1)
Quarter: 2019Q4

REPORT INFORMATION
  Report Type: Spontaneous
  Country: US (occurrence: US)
  Receive Date: 20191017
  Receipt Date: 20191017
  Transmission Date: 20200122
  Serious: No
  Sender: FDA-Public Use
  Company Number: US-ASTRAZENECA-2019SF47296

PATIENT
  Age: 71 Year
  Sex: Female

DRUGS (1)
  1. PRILOSEC [Suspect]
     Active Substance: OMEPRAZOLE MAGNESIUM
     Indication: ABDOMINAL DISCOMFORT
     Route: 048

REACTIONS (5)
  - Abdominal distension [Recovered/Resolved]
  - Off label use [Unknown]
  - Abdominal pain upper [Recovered/Resolved]
  - Product use in unapproved indication [Unknown]
  - Abdominal discomfort [Recovered/Resolved]
